FAERS Safety Report 7783919-3 (Version None)
Quarter: 2011Q3

REPORT INFORMATION
  Report Type: 
  Country: None (occurrence: None)
  Receive Date: 20110928
  Receipt Date: 20110825
  Transmission Date: 20111222
  Serious: Yes (Hospitalization, Other)
  Sender: FDA-Public Use
  Company Number: BE-VIIV HEALTHCARE LIMITED-B0750701A

PATIENT
  Sex: Male
  Weight: 81 kg

DRUGS (4)
  1. ETRAVIRINE [Concomitant]
     Indication: HIV INFECTION
     Route: 048
     Dates: start: 20110531
  2. LAMIVUDINE [Concomitant]
     Indication: HIV INFECTION
     Route: 048
     Dates: start: 20110531
  3. RALTEGRAVIR [Concomitant]
     Indication: HIV INFECTION
     Route: 048
     Dates: start: 20110531
  4. MARAVIROC [Suspect]
     Indication: HIV INFECTION
     Dosage: 600MG TWICE PER DAY
     Route: 048
     Dates: start: 20110531

REACTIONS (1)
  - ADENOCARCINOMA [None]
